FAERS Safety Report 18794512 (Version 1)
Quarter: 2021Q1

REPORT INFORMATION
  Report Type: Spontaneous
  Country: JP (occurrence: JP)
  Receive Date: 20210127
  Receipt Date: 20210127
  Transmission Date: 20210419
  Serious: Yes (Other)
  Sender: FDA-Public Use
  Company Number: JP-BRISTOL-MYERS SQUIBB COMPANY-BMS-2020-107151

PATIENT
  Age: 92 Year
  Sex: Male
  Weight: 60.8 kg

DRUGS (12)
  1. ELIQUIS [Suspect]
     Active Substance: APIXABAN
     Indication: CEREBROVASCULAR ACCIDENT PROPHYLAXIS
     Dosage: 2.5 MILLIGRAM, BID
     Route: 065
     Dates: start: 20170307
  2. TOVIAZ [Concomitant]
     Active Substance: FESOTERODINE FUMARATE
     Indication: HYPERTONIC BLADDER
     Dosage: 4 MILLIGRAM, QD
     Route: 048
     Dates: end: 20200902
  3. RABEPRAZOLE [Concomitant]
     Active Substance: RABEPRAZOLE
     Indication: GASTROOESOPHAGEAL REFLUX DISEASE
     Dosage: 10 MILLIGRAM, QD
     Route: 048
     Dates: start: 20200422
  4. AFLOQUALONE [Concomitant]
     Active Substance: AFLOQUALONE
     Indication: PRODUCT USED FOR UNKNOWN INDICATION
     Dosage: 20 MILLIGRAM, BID
     Route: 048
     Dates: start: 20160229
  5. PRAVASTATIN SODIUM. [Concomitant]
     Active Substance: PRAVASTATIN SODIUM
     Indication: HYPERCHOLESTEROLAEMIA
     Dosage: 5 MILLIGRAM, QD
     Route: 048
  6. MERISLON [Concomitant]
     Active Substance: BETAHISTINE MESILATE
     Indication: VERTIGO
     Dosage: 6 MILLIGRAM, BID
     Route: 048
     Dates: start: 20180104
  7. MAGNESIUM OXIDE. [Concomitant]
     Active Substance: MAGNESIUM OXIDE
     Indication: VERTIGO
     Dosage: 330 MILLIGRAM, BID
     Route: 048
  8. LANIRAPID [Concomitant]
     Active Substance: METILDIGOXIN
     Indication: TACHYCARDIA
     Dosage: 0.05 MILLIGRAM, QD
     Route: 048
     Dates: start: 20180528
  9. SUNRYTHM [Concomitant]
     Active Substance: PILSICAINIDE HYDROCHLORIDE
     Indication: TACHYARRHYTHMIA
     Dosage: 50 MILLIGRAM, BID
     Route: 048
     Dates: start: 20190619
  10. SILODOSIN. [Concomitant]
     Active Substance: SILODOSIN
     Indication: BENIGN PROSTATIC HYPERPLASIA
     Dosage: 4 MILLIGRAM, BID
     Route: 048
  11. AMITIZA [Concomitant]
     Active Substance: LUBIPROSTONE
     Indication: CONSTIPATION
     Dosage: 24 MICROGRAM, BID
     Route: 048
     Dates: start: 20190821, end: 20201027
  12. DIFENIDOL [Concomitant]
     Active Substance: DIPHENIDOL
     Indication: VERTIGO
     Dosage: 25 MILLIGRAM, BID
     Route: 048
     Dates: start: 20180104

REACTIONS (5)
  - Prescribed underdose [Unknown]
  - Dermal cyst [Unknown]
  - Haematoma [Recovered/Resolved]
  - Lumbar spinal stenosis [Unknown]
  - Fall [Recovered/Resolved]

NARRATIVE: CASE EVENT DATE: 202008
